FAERS Safety Report 5155492-X (Version None)
Quarter: 2006Q4

REPORT INFORMATION
  Report Type: 
  Country: None (occurrence: None)
  Receive Date: 20061121
  Receipt Date: 20060921
  Transmission Date: 20070319
  Serious: Yes (Death, Life-Threatening, Hospitalization)
  Sender: FDA-Public Use
  Company Number: BE-BOEHRINGER INGELHEIM PHARMACEUTICALS, INC.-2006-BL-00194BL

PATIENT
  Age: 92 Year
  Sex: Female

DRUGS (6)
  1. MOBIC [Suspect]
     Indication: OSTEOARTHRITIS
     Route: 048
     Dates: start: 20050101
  2. ASPIRIN [Suspect]
     Indication: PROPHYLAXIS
     Route: 048
  3. ZESTRIL [Concomitant]
     Route: 048
  4. FUROSEMIDE [Concomitant]
     Route: 048
  5. SERESTA [Concomitant]
     Route: 048
  6. SPIRONOLACTONE [Concomitant]
     Indication: CARDIAC FAILURE
     Route: 048

REACTIONS (4)
  - ANAEMIA [None]
  - CARDIAC DEATH [None]
  - GASTRIC ULCER HAEMORRHAGE [None]
  - SHOCK [None]
